FAERS Safety Report 7675570-0 (Version None)
Quarter: 2011Q3

REPORT INFORMATION
  Report Type: 
  Country: None (occurrence: None)
  Receive Date: 20110810
  Receipt Date: 20110801
  Transmission Date: 20111222
  Serious: Yes (Hospitalization)
  Sender: FDA-Public Use
  Company Number: US-CELGENEUS-163-21880-11080357

PATIENT
  Sex: Male

DRUGS (29)
  1. FOLIC ACID [Concomitant]
     Dosage: 200 MICROGRAM
     Route: 048
  2. CEPHALEXIN [Concomitant]
     Dosage: 500 MILLIGRAM
     Route: 048
  3. METAMUCIL-2 [Concomitant]
     Dosage: 48.57%
     Route: 065
  4. PROTONIX [Concomitant]
     Dosage: 20 MILLIGRAM
     Route: 048
  5. PLAVIX [Concomitant]
     Dosage: 75 MILLIGRAM
     Route: 048
  6. POTASSIUM [Concomitant]
     Dosage: 75 MILLIGRAM
     Route: 048
  7. PANTOPRAZOLE [Concomitant]
     Dosage: 20 MILLIGRAM
     Route: 048
  8. LIPITOR [Concomitant]
     Dosage: 40 MILLIGRAM
     Route: 048
  9. FLUDROCORTISONE ACETATE [Concomitant]
     Dosage: .1 MILLIGRAM
     Route: 048
  10. METOPROLOL TARTRATE [Concomitant]
     Dosage: 25 MILLIGRAM
     Route: 048
  11. VITAMIN D [Concomitant]
     Dosage: 50,000IU
     Route: 048
  12. MEGESTROL ACETATE [Concomitant]
     Dosage: 40 MILLIGRAM
     Route: 065
  13. ALLOPURINOL [Concomitant]
     Dosage: 100 MILLIGRAM
     Route: 048
  14. AMOXICILLIN [Concomitant]
     Dosage: 500 MILLIGRAM
     Route: 048
  15. PANDEL [Concomitant]
     Dosage: 45 GRAM
     Route: 061
  16. LEVAQUIN [Concomitant]
     Dosage: 500 MILLIGRAM
     Route: 048
  17. REVLIMID [Suspect]
     Indication: MULTIPLE MYELOMA
     Dosage: 10 MILLIGRAM
     Route: 048
     Dates: start: 20080402
  18. PREDNISONE [Concomitant]
     Dosage: 5 MILLIGRAM
     Route: 048
  19. CHLORHEXIDINE [Concomitant]
     Route: 048
  20. NITROGLYCERIN [Concomitant]
     Dosage: .4 MILLIGRAM
     Route: 060
  21. CIPROFLOXACIN [Concomitant]
     Dosage: 500 MILLIGRAM
     Route: 048
  22. ERYTHROMYCIN [Concomitant]
     Route: 047
  23. NIACINAMIDE [Concomitant]
     Dosage: 100 MILLIGRAM
     Route: 048
  24. ISOSORBIDE MONONITRATE [Concomitant]
     Route: 065
  25. NEXIUM [Concomitant]
     Dosage: 40 MILLIGRAM
     Route: 048
  26. DOXYCYCLINE HYCLATE [Concomitant]
     Dosage: 100 MILLIGRAM
     Route: 065
  27. CALCIUM + D [Concomitant]
     Dosage: 600 MILLIGRAM
     Route: 048
  28. FUROSEMIDE [Concomitant]
     Dosage: 20 MILLIGRAM
     Route: 048
  29. HYDROCODONE BITARTRATE AND ACETAMINOPHEN [Concomitant]
     Dosage: 5MG/500
     Route: 065

REACTIONS (1)
  - ARRHYTHMIA [None]
